FAERS Safety Report 6974097-9 (Version None)
Quarter: 2010Q3

REPORT INFORMATION
  Report Type: 
  Country: None (occurrence: None)
  Receive Date: 20100909
  Receipt Date: 20100817
  Transmission Date: 20110219
  Serious: Yes (Hospitalization, Other)
  Sender: FDA-Public Use
  Company Number: US-BAYER-201018323NA

PATIENT
  Age: 31 Year
  Sex: Female
  Weight: 80 kg

DRUGS (14)
  1. YAZ [Suspect]
     Indication: PRODUCT USED FOR UNKNOWN INDICATION
     Route: 048
     Dates: start: 20080401, end: 20080701
  2. YASMIN [Suspect]
     Indication: PRODUCT USED FOR UNKNOWN INDICATION
     Route: 048
     Dates: start: 20061101, end: 20080401
  3. YASMIN [Suspect]
     Route: 048
     Dates: start: 20090901, end: 20100801
  4. YASMIN [Suspect]
     Route: 048
     Dates: start: 20041201, end: 20060601
  5. OCELLA [Suspect]
     Indication: PRODUCT USED FOR UNKNOWN INDICATION
     Route: 065
     Dates: start: 20080701, end: 20090801
  6. ASCORBIC ACID [Concomitant]
     Route: 065
  7. MULTI-VITAMIN [Concomitant]
     Route: 065
  8. ADVIL LIQUI-GELS [Concomitant]
     Indication: HEADACHE
     Route: 065
  9. ALEVE (CAPLET) [Concomitant]
     Indication: HEADACHE
     Route: 065
  10. PAXIL [Concomitant]
     Indication: ANXIETY
     Route: 048
     Dates: start: 20050101, end: 20080101
  11. HERBAL TEA [Concomitant]
     Route: 065
     Dates: end: 20070101
  12. HERBAL VITAMINES [Concomitant]
     Route: 065
     Dates: end: 20070101
  13. PERCOCET 5/375 MG [Concomitant]
     Indication: PAIN
     Dosage: Q6H
     Route: 065
     Dates: start: 20070313
  14. BCP [Concomitant]

REACTIONS (5)
  - ABDOMINAL PAIN UPPER [None]
  - CHOLECYSTITIS CHRONIC [None]
  - CHOLESTEROSIS [None]
  - NAUSEA [None]
  - OVARIAN CYST [None]
